FAERS Safety Report 5511195-0 (Version None)
Quarter: 2007Q4

REPORT INFORMATION
  Report Type: 
  Country: None (occurrence: None)
  Receive Date: 20071109
  Receipt Date: 20071101
  Transmission Date: 20080405
  Serious: Yes (Hospitalization, Other)
  Sender: FDA-Public Use
  Company Number: US-LLY01-US200708002319

PATIENT
  Age: 80 Year
  Sex: Male
  Weight: 68.027 kg

DRUGS (1)
  1. GEMZAR [Suspect]
     Indication: SMALL INTESTINE CARCINOMA
     Dosage: 1000 MG/M2, UNK
     Dates: start: 20070731, end: 20070806

REACTIONS (4)
  - COUGH [None]
  - CYANOSIS [None]
  - DYSPNOEA [None]
  - HYPOXIA [None]
